FAERS Safety Report 5149622-3 (Version None)
Quarter: 2006Q4

REPORT INFORMATION
  Report Type: 
  Country: None (occurrence: None)
  Receive Date: 20061113
  Receipt Date: 20060619
  Transmission Date: 20070319
  Serious: No
  Sender: FDA-Public Use
  Company Number: US-GLAXOSMITHKLINE-A0609584A

PATIENT
  Age: 90 Year
  Sex: Male

DRUGS (15)
  1. COREG [Suspect]
     Indication: DRUG USE FOR UNKNOWN INDICATION
     Route: 048
     Dates: start: 20060401
  2. LEVOXYL [Concomitant]
  3. ASPIRIN [Concomitant]
  4. LASIX [Concomitant]
  5. COZAAR [Concomitant]
  6. FOLIC ACID [Concomitant]
  7. MAGNESIUM [Concomitant]
  8. VITAMIN B-12 [Concomitant]
  9. VITAMIN B6 [Concomitant]
  10. ASCORBIC ACID [Concomitant]
  11. VITAMIN D [Concomitant]
  12. VITAMIN E [Concomitant]
  13. OMEGA 3 FISH OIL [Concomitant]
  14. PRAVACHOL [Concomitant]
  15. COUMADIN [Concomitant]

REACTIONS (1)
  - DYSPNOEA [None]
